FAERS Safety Report 12222495 (Version 1)
Quarter: 2016Q1

REPORT INFORMATION
  Report Type: Spontaneous
  Country: GB (occurrence: GB)
  Receive Date: 20160330
  Receipt Date: 20160330
  Transmission Date: 20160526
  Serious: Yes (Other)
  Sender: FDA-Public Use
  Company Number: GB-AMGEN-GBRSP2016001024

PATIENT
  Age: 57 Year
  Sex: Female
  Weight: 58 kg

DRUGS (2)
  1. ARANESP [Suspect]
     Active Substance: DARBEPOETIN ALFA
     Indication: CHRONIC KIDNEY DISEASE
  2. ARANESP [Suspect]
     Active Substance: DARBEPOETIN ALFA
     Indication: ANAEMIA
     Dosage: 20 MUG, QMO
     Route: 065
     Dates: start: 2015

REACTIONS (4)
  - Upper limb fracture [Unknown]
  - Drug dose omission [Unknown]
  - Humerus fracture [Unknown]
  - Device issue [Unknown]

NARRATIVE: CASE EVENT DATE: 20151220
